FAERS Safety Report 9782044 (Version 3)
Quarter: 2014Q1

REPORT INFORMATION
  Report Type: Spontaneous
  Country: FI (occurrence: FI)
  Receive Date: 20131226
  Receipt Date: 20140228
  Transmission Date: 20141002
  Serious: Yes (Other)
  Sender: FDA-Public Use
  Company Number: FI-AMGEN-FINSP2013090467

PATIENT
  Sex: Female

DRUGS (23)
  1. ENBREL [Suspect]
     Indication: PRODUCT USED FOR UNKNOWN INDICATION
     Dosage: UNK
     Route: 065
     Dates: start: 2006, end: 201211
  2. HUMIRA [Interacting]
     Indication: PRODUCT USED FOR UNKNOWN INDICATION
     Dosage: 40 MG, EVERY TWO WEEKS
     Route: 065
     Dates: start: 201211
  3. NOVORAPID [Suspect]
     Indication: TYPE 1 DIABETES MELLITUS
     Dosage: 3-5 UNITS BEFORE MEALS
     Route: 065
  4. LEVEMIR [Suspect]
     Indication: TYPE 1 DIABETES MELLITUS
     Dosage: UNK
     Route: 065
  5. PRIMPERAN [Concomitant]
     Dosage: UNK
  6. SOMAC [Concomitant]
     Dosage: UNK
  7. SOLOMET                            /00049601/ [Concomitant]
     Dosage: UNK
  8. PAMOL [Concomitant]
     Dosage: UNK
  9. ARCOXIA [Concomitant]
     Dosage: UNK
  10. CLOPIDOGREL [Concomitant]
     Dosage: UNK
  11. PROPRAL [Concomitant]
     Dosage: UNK
  12. SIMVASTATIN [Concomitant]
     Dosage: 20 MG, 1X/DAY
  13. OPAMOX [Concomitant]
     Dosage: 50 MG, DAILY
  14. CALCICHEW-D3 FORTE [Concomitant]
     Dosage: 1 DF, 2X/DAY
  15. ATARAX                             /00058402/ [Concomitant]
     Dosage: UNK
  16. PANACOD [Concomitant]
     Dosage: UNK
  17. VITAMIN C                          /00008001/ [Concomitant]
     Dosage: UNK
  18. BETOLVEX                           /00056202/ [Concomitant]
     Dosage: 1 MG, DAILY
  19. JANUMET [Concomitant]
     Dosage: 4 MG, 1X/DAY
  20. FEMOSTON [Concomitant]
     Dosage: 1 DF, ALTERNATE DAY
  21. FURESIS [Concomitant]
     Dosage: 20 MG, 1X/DAY
  22. OMEPRAZOL                          /00661201/ [Concomitant]
     Dosage: 20 MG, 2X/DAY
  23. LANTUS [Concomitant]
     Dosage: 6-9 UNITS/DAY

REACTIONS (7)
  - Drug interaction [Not Recovered/Not Resolved]
  - Loss of consciousness [Unknown]
  - Epilepsy [Not Recovered/Not Resolved]
  - Hypoglycaemia [Not Recovered/Not Resolved]
  - Fall [Not Recovered/Not Resolved]
  - Wound [Unknown]
  - Contusion [Unknown]
